FAERS Safety Report 7916683-5 (Version None)
Quarter: 2011Q4

REPORT INFORMATION
  Report Type: 
  Country: None (occurrence: None)
  Receive Date: 20111116
  Receipt Date: 20111019
  Transmission Date: 20120403
  Serious: No
  Sender: FDA-Public Use
  Company Number: US-BAYER-2011-101663

PATIENT
  Sex: Female

DRUGS (1)
  1. YAZ [Suspect]
     Dosage: UNK UNK, QD
     Route: 048
     Dates: start: 20111009

REACTIONS (4)
  - BACK PAIN [None]
  - PYREXIA [None]
  - UNEVALUABLE EVENT [None]
  - MUSCLE SPASMS [None]
